FAERS Safety Report 6119227-6 (Version None)
Quarter: 2009Q1

REPORT INFORMATION
  Report Type: 
  Country: None (occurrence: None)
  Receive Date: 20090316
  Receipt Date: 20090304
  Transmission Date: 20090719
  Serious: Yes (Other)
  Sender: FDA-Public Use
  Company Number: US-ROCHE-619730

PATIENT
  Age: 45 Year

DRUGS (1)
  1. TAMIFLU [Suspect]
     Route: 065
     Dates: start: 20090227

REACTIONS (4)
  - ANGER [None]
  - CRYING [None]
  - DEPRESSION [None]
  - SUICIDAL IDEATION [None]
